FAERS Safety Report 12241477 (Version 1)
Quarter: 2016Q2

REPORT INFORMATION
  Report Type: Spontaneous
  Country: US (occurrence: US)
  Receive Date: 20160406
  Receipt Date: 20160406
  Transmission Date: 20160815
  Serious: No
  Sender: FDA-Public Use
  Company Number: US-PFIZER INC-2016188900

PATIENT
  Age: 55 Year
  Sex: Female

DRUGS (12)
  1. LEVOXINE [Suspect]
     Active Substance: LEVOTHYROXINE SODIUM
     Dosage: UNK
  2. SULFASALAZINE. [Suspect]
     Active Substance: SULFASALAZINE
     Dosage: UNK
  3. STOOL SOFTENER [Suspect]
     Active Substance: DOCUSATE CALCIUM
     Dosage: UNK
  4. NIFEDIPINE. [Suspect]
     Active Substance: NIFEDIPINE
     Dosage: UNK
  5. HYDROCHLOROTHIAZIDE. [Suspect]
     Active Substance: HYDROCHLOROTHIAZIDE
     Dosage: UNK
  6. METFORMIN HCL [Suspect]
     Active Substance: METFORMIN HYDROCHLORIDE
     Dosage: UNK
  7. SULINDAC. [Suspect]
     Active Substance: SULINDAC
     Dosage: UNK
  8. REMICADE [Suspect]
     Active Substance: INFLIXIMAB
  9. ATENOLOL. [Suspect]
     Active Substance: ATENOLOL
     Dosage: UNK
  10. FISH OIL [Suspect]
     Active Substance: FISH OIL
     Dosage: 4 CAPSULES A DAY
  11. LYRICA [Suspect]
     Active Substance: PREGABALIN
     Indication: DIABETIC NEUROPATHY
     Dosage: CAPSULE, ORALLY, TWICE A DAY
     Route: 048
  12. BABY ASPIRIN [Suspect]
     Active Substance: ASPIRIN
     Dosage: UNK

REACTIONS (1)
  - Pain [Not Recovered/Not Resolved]
